FAERS Safety Report 5004838-1 (Version None)
Quarter: 2006Q2

REPORT INFORMATION
  Report Type: 
  Country: None (occurrence: None)
  Receive Date: 20060517
  Receipt Date: 20060130
  Transmission Date: 20061013
  Serious: Yes (Hospitalization)
  Sender: FDA-Public Use
  Company Number: US-MERCK-0602USA00091

PATIENT
  Age: 73 Year
  Sex: Male
  Weight: 84 kg

DRUGS (14)
  1. VIOXX [Suspect]
     Indication: POLYMYALGIA RHEUMATICA
     Route: 048
     Dates: start: 20030927, end: 20040930
  2. PREDNISONE [Concomitant]
     Indication: PAIN
     Route: 065
     Dates: start: 20030723, end: 20040507
  3. MONOPRIL [Concomitant]
     Indication: HYPERTENSION
     Route: 065
     Dates: start: 20010305
  4. ATENOLOL [Concomitant]
     Indication: HYPERTENSION
     Route: 065
     Dates: start: 20010209
  5. LIPITOR [Concomitant]
     Indication: BLOOD CHOLESTEROL INCREASED
     Route: 065
     Dates: start: 20010209
  6. DARVOCET-N 100 [Concomitant]
     Indication: PAIN
     Route: 065
     Dates: start: 20030927
  7. AMARYL [Concomitant]
     Indication: DIABETES MELLITUS
     Route: 065
  8. PREVACID [Concomitant]
     Indication: GASTRIC DISORDER
     Route: 065
  9. FOSINOPRIL SODIUM [Concomitant]
     Route: 065
  10. ALLEGRA [Concomitant]
     Route: 065
  11. SINGULAIR [Concomitant]
     Indication: HYPERSENSITIVITY
     Route: 065
  12. SINGULAIR [Concomitant]
     Indication: RESPIRATORY DISORDER
     Route: 065
  13. AVELOX [Concomitant]
     Route: 065
  14. SYNTHROID [Concomitant]
     Indication: HYPOTHYROIDISM
     Route: 065

REACTIONS (3)
  - ACUTE MYOCARDIAL INFARCTION [None]
  - BRADYCARDIA [None]
  - CORONARY ARTERY DISEASE [None]
